FAERS Safety Report 7325918-1 (Version None)
Quarter: 2011Q1

REPORT INFORMATION
  Report Type: 
  Country: None (occurrence: None)
  Receive Date: 20110218
  Receipt Date: 20110207
  Transmission Date: 20110831
  Serious: Yes (Hospitalization)
  Sender: FDA-Public Use
  Company Number: 826061

PATIENT
  Age: 83 Year
  Sex: Male

DRUGS (6)
  1. ERBITUX [Suspect]
     Indication: COLON CANCER
     Dosage: 300 MG MILLIGRAMS, INTRAVENOUS
     Route: 042
     Dates: start: 20101116, end: 20101130
  2. DILATREND [Concomitant]
  3. IRINOTECAN HYDROCHLORIDE [Suspect]
     Indication: COLON CANCER
     Dosage: 150 MG MILLIGRAMS, INTRAVENOUIS
     Route: 042
     Dates: start: 20101116, end: 20101130
  4. ENAPREN [Concomitant]
  5. SIMVASTATIN [Concomitant]
  6. COUMADIN [Concomitant]

REACTIONS (5)
  - DIARRHOEA [None]
  - ABDOMINAL PAIN [None]
  - NAUSEA [None]
  - PYREXIA [None]
  - DYSPHAGIA [None]
